FAERS Safety Report 16871798 (Version 1)
Quarter: 2019Q3

REPORT INFORMATION
  Report Type: Spontaneous
  Country: US (occurrence: US)
  Receive Date: 20190807
  Receipt Date: 20190807
  Transmission Date: 20191007
  Serious: No
  Sender: FDA-Public Use
  Company Number: None

PATIENT
  Age: 56 Year
  Sex: Female
  Weight: 101.6 kg

DRUGS (1)
  1. SULFASALAZINE. [Suspect]
     Active Substance: SULFASALAZINE
     Indication: ABDOMINAL PAIN
     Route: 048
     Dates: start: 20190605, end: 20190726

REACTIONS (3)
  - Angioedema [None]
  - Rash [None]
  - Hepatic enzyme increased [None]

NARRATIVE: CASE EVENT DATE: 20190724
